FAERS Safety Report 23754512 (Version 1)
Quarter: 2024Q2

REPORT INFORMATION
  Report Type: Spontaneous
  Country: ES (occurrence: ES)
  Receive Date: 20240418
  Receipt Date: 20240418
  Transmission Date: 20240715
  Serious: Yes (Other)
  Sender: FDA-Public Use
  Company Number: None

PATIENT

DRUGS (1)
  1. MUPIROCIN [Suspect]
     Active Substance: MUPIROCIN
     Indication: Folliculitis
     Dosage: UNK(MUPIROCIN 20 MG/G OINTMENT 30 G 1 TUBE)
     Route: 065
     Dates: start: 20240324, end: 20240325

REACTIONS (2)
  - Erythema [Recovering/Resolving]
  - Application site erythema [Recovering/Resolving]

NARRATIVE: CASE EVENT DATE: 20240325
